FAERS Safety Report 6311331-2 (Version None)
Quarter: 2009Q3

REPORT INFORMATION
  Report Type: 
  Country: None (occurrence: None)
  Receive Date: 20090817
  Receipt Date: 20090803
  Transmission Date: 20100115
  Serious: Yes (Other)
  Sender: FDA-Public Use
  Company Number: PHHY2009BR33296

PATIENT
  Age: 73 Year
  Sex: Female

DRUGS (2)
  1. DICLOFENAC SODIUM [Suspect]
     Indication: PAIN
     Dosage: UNK
     Dates: start: 20070101
  2. DICLOFENAC SODIUM [Suspect]
     Indication: ARTHRALGIA
     Dosage: UNK
     Dates: start: 20090803

REACTIONS (4)
  - GAIT DISTURBANCE [None]
  - PAIN [None]
  - SCIATICA [None]
  - SYNOVIAL CYST [None]
